FAERS Safety Report 4702500-3 (Version None)
Quarter: 2005Q2

REPORT INFORMATION
  Report Type: 
  Country: None (occurrence: None)
  Receive Date: 20050629
  Receipt Date: 20050620
  Transmission Date: 20051028
  Serious: Yes (Death, Hospitalization)
  Sender: FDA-Public Use
  Company Number: JP-JNJFOC-20050302991

PATIENT
  Sex: Female
  Weight: 53.4 kg

DRUGS (51)
  1. REMICADE [Suspect]
     Route: 042
  2. REMICADE [Suspect]
     Route: 042
  3. REMICADE [Suspect]
     Indication: RHEUMATOID ARTHRITIS
     Route: 042
  4. RHEUMATREX [Suspect]
     Route: 049
  5. RHEUMATREX [Suspect]
     Route: 049
  6. RHEUMATREX [Suspect]
     Indication: RHEUMATOID ARTHRITIS
     Route: 049
  7. PREDONINE [Concomitant]
     Indication: RHEUMATOID ARTHRITIS
     Dosage: BOTH ORAL AND INJECTABLE GIVEN.
     Route: 049
  8. INFREE-S [Concomitant]
     Indication: RHEUMATOID ARTHRITIS
     Route: 049
  9. MUCOSTA [Concomitant]
     Route: 049
  10. GASTER-D [Concomitant]
     Route: 049
  11. SOLU-MEDROL [Concomitant]
     Route: 050
  12. LEUCOVORIN [Concomitant]
     Route: 049
  13. ULCERLMIN [Concomitant]
     Dosage: VIA TUBE.
  14. ENTERONON-R [Concomitant]
  15. ENTERONON-R [Concomitant]
  16. ENTERONON-R [Concomitant]
  17. ENTERONON-R [Concomitant]
  18. ENTERONON-R [Concomitant]
     Dosage: VIA TUBE.
  19. ISCOTIN [Concomitant]
     Dosage: VIA TUBE.
  20. MIYA-BM [Concomitant]
     Dosage: VIA TUBE.
  21. POLYMYXIN-B SULPHATE [Concomitant]
     Dosage: VIA TUBE.
  22. NEORAL LIQUID FOR INTERNAL USE [Concomitant]
     Dosage: VIA TUBE.
  23. ELASPOL [Concomitant]
     Route: 050
  24. FUNGUARD [Concomitant]
     Route: 050
  25. MIRACLID [Concomitant]
     Route: 050
  26. DIPRIVAN [Concomitant]
     Route: 050
  27. PREDOPA [Concomitant]
     Route: 050
  28. DOBUTREX [Concomitant]
  29. TAGOCID [Concomitant]
     Route: 050
  30. MODACIN [Concomitant]
     Route: 050
  31. DALACIN S [Concomitant]
     Route: 050
  32. DONATED ALBUMIN [Concomitant]
     Route: 050
  33. AMINO ACID INJ [Concomitant]
     Route: 050
  34. PRIMPERAN INJ [Concomitant]
     Route: 050
  35. ASPARA-K [Concomitant]
     Route: 050
  36. FLOMAX [Concomitant]
     Route: 050
  37. MINERALIN [Concomitant]
     Route: 050
  38. ZANTAC [Concomitant]
     Route: 050
  39. PANTOL [Concomitant]
     Route: 050
  40. PROSTARMON [Concomitant]
     Route: 050
  41. DENOSINE [Concomitant]
     Route: 050
  42. MULTIVITAMIN ADDITIVE [Concomitant]
     Route: 050
  43. THIENAM [Concomitant]
     Route: 050
  44. THIENAM [Concomitant]
     Route: 050
  45. FLORID-F [Concomitant]
     Route: 050
  46. LASIX [Concomitant]
     Route: 050
  47. 5% GLUCOSE [Concomitant]
     Route: 050
  48. 70% G PHYSIOLOGIC SALINE [Concomitant]
  49. 70% G PHYSIOLOGIC SALINE [Concomitant]
  50. 70% G PHYSIOLOGIC SALINE [Concomitant]
  51. 70% G PHYSIOLOGIC SALINE [Concomitant]

REACTIONS (3)
  - INTERSTITIAL LUNG DISEASE [None]
  - PNEUMOCYSTIS JIROVECI PNEUMONIA [None]
  - RESPIRATORY FAILURE [None]
